FAERS Safety Report 19168383 (Version 1)
Quarter: 2021Q2

REPORT INFORMATION
  Report Type: Spontaneous
  Country: US (occurrence: US)
  Receive Date: 20210422
  Receipt Date: 20210422
  Transmission Date: 20210717
  Serious: No
  Sender: FDA-Public Use
  Company Number: US-TEVA-2021-US-1901831

PATIENT

DRUGS (1)
  1. CARVEDILOL. [Suspect]
     Active Substance: CARVEDILOL
     Indication: HYPERTENSION
     Dosage: ELLIPTICAL?SHAPED, WHITE/TV/7296
     Route: 065
     Dates: start: 202104

REACTIONS (4)
  - Muscle spasms [Unknown]
  - Vision blurred [Unknown]
  - Freezing phenomenon [Unknown]
  - Drug ineffective [Unknown]

NARRATIVE: CASE EVENT DATE: 202104
